FAERS Safety Report 6724813-6 (Version None)
Quarter: 2010Q2

REPORT INFORMATION
  Report Type: 
  Country: None (occurrence: None)
  Receive Date: 20100513
  Receipt Date: 20100504
  Transmission Date: 20101027
  Serious: Yes (Other)
  Sender: FDA-Public Use
  Company Number: US-JNJFOC-20091103921

PATIENT
  Sex: Female
  Weight: 83.46 kg

DRUGS (11)
  1. REMICADE [Suspect]
     Indication: RHEUMATOID ARTHRITIS
     Route: 042
  2. CELEBREX [Concomitant]
     Indication: ARTHRITIS
     Route: 048
  3. METHOTREXATE [Concomitant]
     Indication: ARTHRITIS
     Route: 048
  4. PLAQUENIL [Concomitant]
     Indication: ARTHRITIS
     Route: 048
  5. ESTROGEN [Concomitant]
     Route: 048
  6. PROGESTERONE [Concomitant]
     Route: 048
  7. FLEXERIL [Concomitant]
     Indication: ARTHRITIS
     Route: 048
  8. CALCIUM WITH VITAMIN D [Concomitant]
  9. FISH  OIL [Concomitant]
  10. FLAXSEED OIL [Concomitant]
  11. MULTI-VITAMINS [Concomitant]

REACTIONS (7)
  - ARTHRALGIA [None]
  - COCCIDIOIDOMYCOSIS [None]
  - INFUSION RELATED REACTION [None]
  - LYMPHADENOPATHY [None]
  - OSTEOPENIA [None]
  - RASH [None]
  - RHEUMATOID ARTHRITIS [None]
